FAERS Safety Report 9261147 (Version 2)
Quarter: 2014Q1

REPORT INFORMATION
  Report Type: Spontaneous
  Country: US (occurrence: US)
  Receive Date: 20130429
  Receipt Date: 20140310
  Transmission Date: 20141002
  Serious: No
  Sender: FDA-Public Use
  Company Number: US-AMGEN-USASP2012065821

PATIENT
  Age: 84 Year
  Sex: Male

DRUGS (2)
  1. SENSIPAR [Suspect]
     Indication: PRODUCT USED FOR UNKNOWN INDICATION
     Dosage: 30 MG, QD
     Dates: start: 201209
  2. SENSIPAR [Suspect]

REACTIONS (1)
  - Diarrhoea [Unknown]
